FAERS Safety Report 4425838-6 (Version None)
Quarter: 2004Q3

REPORT INFORMATION
  Report Type: 
  Country: None (occurrence: None)
  Receive Date: 20040811
  Receipt Date: 20040729
  Transmission Date: 20050211
  Serious: Yes (Other)
  Sender: FDA-Public Use
  Company Number: 04-00417

PATIENT
  Age: 66 Year
  Sex: Female

DRUGS (3)
  1. DILTIAZEM HYDROCHLORIDE [Suspect]
     Indication: HYPERTENSION
  2. ROFECOXIB [Concomitant]
  3. PANTOPRAZOLC [Concomitant]

REACTIONS (6)
  - BIOPSY SKIN ABNORMAL [None]
  - HYPERKERATOSIS [None]
  - LYMPHOCYTIC INFILTRATION [None]
  - RASH PAPULAR [None]
  - SKIN HYPERPIGMENTATION [None]
  - THERAPY NON-RESPONDER [None]
